FAERS Safety Report 5202209-6 (Version None)
Quarter: 2006Q4

REPORT INFORMATION
  Report Type: 
  Country: None (occurrence: None)
  Receive Date: 20061010
  Receipt Date: 20060426
  Transmission Date: 20070319
  Serious: Yes (Hospitalization)
  Sender: FDA-Public Use
  Company Number: 2006P1000285

PATIENT
  Age: 74 Year
  Sex: Female
  Weight: 70 kg

DRUGS (5)
  1. RETEPLASE (RETEPLASE) [Suspect]
     Indication: ACUTE MYOCARDIAL INFARCTION
     Dosage: 5 IU: X1; IVB
     Route: 040
     Dates: start: 20051217, end: 20051217
  2. RETEPLASE (RETEPLASE) [Suspect]
     Indication: ACUTE MYOCARDIAL INFARCTION
     Dosage: 5 IU: X1; IVB
     Route: 040
     Dates: start: 20051217, end: 20051217
  3. ABCIXIMAB (ABCIXIMAB) [Suspect]
     Indication: ACUTE MYOCARDIAL INFARCTION
     Dosage: 8.8 ML; X1; IVB;  QH; IV
     Route: 040
     Dates: start: 20051217, end: 20051217
  4. ABCIXIMAB (ABCIXIMAB) [Suspect]
     Indication: ACUTE MYOCARDIAL INFARCTION
     Dosage: 8.8 ML; X1; IVB;  QH; IV
     Route: 040
     Dates: start: 20051217, end: 20051217
  5. HEPARIN [Concomitant]

REACTIONS (1)
  - CARDIAC FAILURE [None]
